FAERS Safety Report 7815145-3 (Version None)
Quarter: 2011Q4

REPORT INFORMATION
  Report Type: 
  Country: None (occurrence: None)
  Receive Date: 20111014
  Receipt Date: 20111014
  Transmission Date: 20120403
  Serious: Yes (Life-Threatening, Disabling, Other)
  Sender: FDA-Public Use
  Company Number: None

PATIENT
  Age: 42 Year
  Sex: Male
  Weight: 90.718 kg

DRUGS (2)
  1. SUBOXONE [Suspect]
     Indication: DRUG DEPENDENCE
     Dosage: 8 MG
     Route: 060
     Dates: start: 20110608, end: 20111013
  2. SUBOXONE [Suspect]
     Indication: SPINAL COLUMN STENOSIS
     Dosage: 8 MG
     Route: 060
     Dates: start: 20110608, end: 20111013

REACTIONS (11)
  - CONFUSIONAL STATE [None]
  - URINARY RETENTION [None]
  - AGGRESSION [None]
  - ERECTILE DYSFUNCTION [None]
  - DISTURBANCE IN ATTENTION [None]
  - MOVEMENT DISORDER [None]
  - EMOTIONAL DISORDER [None]
  - DRUG DEPENDENCE [None]
  - IRRITABILITY [None]
  - BLOOD TESTOSTERONE DECREASED [None]
  - DYSURIA [None]
